FAERS Safety Report 16193554 (Version 1)
Quarter: 2019Q2

REPORT INFORMATION
  Report Type: Spontaneous
  Country: FR (occurrence: FR)
  Receive Date: 20190413
  Receipt Date: 20190413
  Transmission Date: 20190711
  Serious: Yes (Other)
  Sender: FDA-Public Use
  Company Number: FR-AMGEN-FRASP2019055511

PATIENT
  Age: 52 Year
  Sex: Male
  Weight: 69.5 kg

DRUGS (4)
  1. VITAMINE B1 B6 BAYER [Concomitant]
     Active Substance: PYRIDOXINE HYDROCHLORIDE\THIAMINE HYDROCHLORIDE
  2. ARANESP [Suspect]
     Active Substance: DARBEPOETIN ALFA
     Indication: MYELODYSPLASTIC SYNDROME
     Dosage: 300 MICROGRAM
     Route: 058
     Dates: start: 201610, end: 20181207
  3. EXJADE [Concomitant]
     Active Substance: DEFERASIROX
  4. REVLIMID [Concomitant]
     Active Substance: LENALIDOMIDE

REACTIONS (1)
  - Skin ulcer [Not Recovered/Not Resolved]

NARRATIVE: CASE EVENT DATE: 201612
